FAERS Safety Report 9442255 (Version 1)
Quarter: 2013Q3

REPORT INFORMATION
  Report Type: Spontaneous
  Country: FR (occurrence: FR)
  Receive Date: 20130806
  Receipt Date: 20130806
  Transmission Date: 20140515
  Serious: Yes (Other)
  Sender: FDA-Public Use
  Company Number: FR-UCBSA-094070

PATIENT
  Age: 36 Year
  Sex: Male

DRUGS (3)
  1. QUASYM LP [Suspect]
     Indication: ATTENTION DEFICIT/HYPERACTIVITY DISORDER
     Route: 048
     Dates: start: 201211
  2. PROZAC [Suspect]
     Route: 048
     Dates: start: 201209
  3. REVIA [Concomitant]

REACTIONS (5)
  - Arthralgia [Unknown]
  - Purpura [Unknown]
  - Muscle spasms [Unknown]
  - Vasculitis necrotising [Unknown]
  - Prescribed overdose [Unknown]
